FAERS Safety Report 4718062-0 (Version None)
Quarter: 2005Q3

REPORT INFORMATION
  Report Type: 
  Country: None (occurrence: None)
  Receive Date: 20050718
  Receipt Date: 20050718
  Transmission Date: 20060218
  Serious: Yes (Life-Threatening, Hospitalization)
  Sender: FDA-Public Use
  Company Number: None

PATIENT
  Weight: 54.8852 kg

DRUGS (8)
  1. ZOLOFT [Suspect]
     Indication: BIPOLAR DISORDER
     Dosage: 20 ML ONCE A DAY ORAL
     Route: 048
     Dates: start: 20040511, end: 20040521
  2. ZOLOFT [Suspect]
     Indication: DEPRESSION
     Dosage: 20 ML ONCE A DAY ORAL
     Route: 048
     Dates: start: 20040511, end: 20040521
  3. WELLBUTRIN [Suspect]
     Dosage: 350/400 ML ONCE A DAY ORAL
     Route: 048
     Dates: start: 20040526, end: 20041114
  4. TRILIPTAL [Concomitant]
  5. LAMICTAL [Concomitant]
  6. TOPAMAX [Concomitant]
  7. GEODDON [Concomitant]
  8. PROZAC [Concomitant]

REACTIONS (10)
  - BIPOLAR DISORDER [None]
  - CONDITION AGGRAVATED [None]
  - DEPRESSION [None]
  - DISTURBANCE IN ATTENTION [None]
  - HEADACHE [None]
  - INTENTIONAL SELF-INJURY [None]
  - SUICIDE ATTEMPT [None]
  - TREMOR [None]
  - VISION BLURRED [None]
  - WEIGHT DECREASED [None]
